FAERS Safety Report 22287127 (Version 1)
Quarter: 2023Q2

REPORT INFORMATION
  Report Type: Spontaneous
  Country: CN (occurrence: CN)
  Receive Date: 20230505
  Receipt Date: 20230505
  Transmission Date: 20230722
  Serious: Yes (Hospitalization, Other)
  Sender: FDA-Public Use
  Company Number: None

PATIENT
  Age: 54 Year
  Sex: Female

DRUGS (6)
  1. CYCLOPHOSPHAMIDE [Suspect]
     Active Substance: CYCLOPHOSPHAMIDE
     Indication: Diffuse large B-cell lymphoma
     Dosage: 400 MG QD DILUTED WITH 250ML OF NS
     Route: 041
     Dates: start: 20230419, end: 20230420
  2. SODIUM CHLORIDE [Suspect]
     Active Substance: SODIUM CHLORIDE
     Indication: Medication dilution
     Dosage: 250ML QD USED TO DILUTE 400 MG OF CYCLOPHOSPHAMIDE
     Route: 041
     Dates: start: 20230419, end: 20230420
  3. SODIUM CHLORIDE [Suspect]
     Active Substance: SODIUM CHLORIDE
     Dosage: 250ML QD USED TO DILUTE 30MG OF DOXORUBICIN HYDROCHLORIDE
     Route: 041
     Dates: start: 20230419, end: 20230421
  4. SODIUM CHLORIDE [Suspect]
     Active Substance: SODIUM CHLORIDE
     Dosage: 100ML QD USED TO DILUTE 1.8 MG OF VINCRISTINE SULFATE
     Route: 041
     Dates: start: 20230420, end: 20230420
  5. DOXORUBICIN HYDROCHLORIDE [Suspect]
     Active Substance: DOXORUBICIN HYDROCHLORIDE
     Indication: Diffuse large B-cell lymphoma
     Dosage: 30 MG QD, DILUTED WITH 250 ML OF NS
     Route: 041
     Dates: start: 20230419, end: 20230421
  6. VINCRISTINE SULFATE [Suspect]
     Active Substance: VINCRISTINE SULFATE
     Indication: Diffuse large B-cell lymphoma
     Dosage: 1.8 MG QD, DILUTED WITH 100 ML OF NS
     Route: 041
     Dates: start: 20230419, end: 20230420

REACTIONS (1)
  - Leukopenia [Recovered/Resolved]

NARRATIVE: CASE EVENT DATE: 20230422
